FAERS Safety Report 7937031-0 (Version None)
Quarter: 2011Q4

REPORT INFORMATION
  Report Type: 
  Country: None (occurrence: None)
  Receive Date: 20111123
  Receipt Date: 20111004
  Transmission Date: 20120403
  Serious: Yes (Hospitalization)
  Sender: FDA-Public Use
  Company Number: DE-ROCHE-797576

PATIENT
  Sex: Male
  Weight: 127 kg

DRUGS (15)
  1. RAMIPRIL [Concomitant]
     Indication: HYPERTENSION
     Dosage: DRUG NAME REPORTED AS RAMIPRIL 50 MG
     Route: 048
  2. ASPIRIN [Concomitant]
     Indication: CORONARY ARTERY DISEASE
     Route: 048
  3. SIMVASTATIN [Concomitant]
     Indication: HYPERCHOLESTEROLAEMIA
     Route: 048
  4. OXALIPLATIN [Suspect]
     Indication: RECTAL CANCER
     Dosage: LAST DOSE PRIOR TO SAE: 06 JUNE 2011.
     Route: 042
  5. METFORMIN [Concomitant]
     Indication: DIABETES MELLITUS
     Route: 048
  6. CEFUROXIME [Concomitant]
     Indication: INFECTION PROPHYLAXIS
     Dates: start: 20110729
  7. METRONIDAZOLE [Concomitant]
     Indication: INFECTION PROPHYLAXIS
     Dates: start: 20110729
  8. CYNT [Concomitant]
     Indication: HYPERTENSION
     Dosage: DOSE: 0.4
     Route: 048
  9. LASIX [Concomitant]
     Indication: HYPERTENSION
     Dosage: 1/2 PER DAY
     Route: 048
  10. ESIDRIX [Concomitant]
     Indication: HYPERTENSION
     Route: 048
  11. BISOPROLOL FUMARATE [Concomitant]
     Indication: HYPERTENSION
     Route: 048
  12. PANTOPRAZOLE [Concomitant]
     Indication: PROPHYLAXIS AGAINST GASTROINTESTINAL ULCER
     Route: 048
  13. XELODA [Suspect]
     Indication: RECTAL CANCER
     Dosage: LAST DOSE PRIOR TO SAE: 01 JULY 2011.
     Route: 048
  14. GLYBURIDE [Concomitant]
     Indication: DIABETES MELLITUS
     Route: 048
  15. AMLODIPINE [Concomitant]
     Indication: HYPERTENSION
     Route: 048

REACTIONS (2)
  - IMPAIRED HEALING [None]
  - WOUND INFECTION [None]
